FAERS Safety Report 5893891-9 (Version None)
Quarter: 2008Q3

REPORT INFORMATION
  Report Type: 
  Country: None (occurrence: None)
  Receive Date: 20080923
  Receipt Date: 20071203
  Transmission Date: 20090109
  Serious: No
  Sender: FDA-Public Use
  Company Number: US-ASTRAZENECA-2007UW27536

PATIENT
  Age: 38 Year
  Sex: Female
  Weight: 70.3 kg

DRUGS (3)
  1. SEROQUEL [Suspect]
     Indication: BIPOLAR DISORDER
     Route: 048
     Dates: start: 20071130
  2. SEROQUEL [Suspect]
     Dosage: 0.5 TABLET
     Route: 048
  3. THYROID SUPPLEMENT [Concomitant]

REACTIONS (5)
  - ANGER [None]
  - HEADACHE [None]
  - IRRITABILITY [None]
  - MEDICATION ERROR [None]
  - PARANOIA [None]
